FAERS Safety Report 5918088-5 (Version None)
Quarter: 2008Q4

REPORT INFORMATION
  Report Type: 
  Country: None (occurrence: None)
  Receive Date: 20081009
  Receipt Date: 20080926
  Transmission Date: 20090506
  Serious: Yes (Life-Threatening, Hospitalization)
  Sender: FDA-Public Use
  Company Number: 2008002513

PATIENT
  Age: 40 Year
  Sex: Female

DRUGS (4)
  1. ERLOTINIB (ERLOTINIB) (TABLET) (ERLOTINIB) [Suspect]
     Indication: COLORECTAL CANCER METASTATIC
     Dosage: 150 MG, QD, ORAL
     Route: 048
     Dates: start: 20080605, end: 20080724
  2. CAPECITABINE (CAPECITABINE) [Suspect]
     Dosage: 1300 MG, BID, ORAL
     Route: 048
     Dates: start: 20080605, end: 20080728
  3. OXALIPLATIN (OXALIPLATIN) (INJECTION FOR INFUSION) [Suspect]
     Dosage: 230 MG, Q3W; INTRAVENOUS
     Route: 042
     Dates: start: 20080605, end: 20080717
  4. INNOHEP (HEPARIN-FRACTION,SODIUM SAL) [Concomitant]

REACTIONS (7)
  - GINGIVAL BLEEDING [None]
  - HAEMATEMESIS [None]
  - HAEMATOMA [None]
  - HAEMORRHAGE [None]
  - PETECHIAE [None]
  - RASH [None]
  - THROMBOCYTOPENIA [None]
